FAERS Safety Report 7366194-3 (Version None)
Quarter: 2011Q1

REPORT INFORMATION
  Report Type: 
  Country: None (occurrence: None)
  Receive Date: 20110322
  Receipt Date: 20110228
  Transmission Date: 20110831
  Serious: Yes (Other)
  Sender: FDA-Public Use
  Company Number: US-ASTRAZENECA-2011SE11049

PATIENT
  Sex: Female

DRUGS (1)
  1. NEXIUM [Suspect]
     Route: 048

REACTIONS (11)
  - OESOPHAGEAL SPASM [None]
  - MAJOR DEPRESSION [None]
  - GASTROOESOPHAGEAL REFLUX DISEASE [None]
  - NEOPLASM MALIGNANT [None]
  - DIABETES MELLITUS [None]
  - HYPOTHYROIDISM [None]
  - HYPERTENSION [None]
  - GASTRITIS [None]
  - GASTROINTESTINAL PAIN [None]
  - CROHN'S DISEASE [None]
  - ABDOMINAL PAIN UPPER [None]
